FAERS Safety Report 7082221-5 (Version None)
Quarter: 2010Q4

REPORT INFORMATION
  Report Type: 
  Country: None (occurrence: None)
  Receive Date: 20101103
  Receipt Date: 20101025
  Transmission Date: 20110411
  Serious: Yes (Hospitalization, Other)
  Sender: FDA-Public Use
  Company Number: PHFR2010GB03620

PATIENT
  Sex: Male

DRUGS (2)
  1. CLOZARIL [Suspect]
     Indication: SCHIZOPHRENIA
     Dosage: UNK
     Route: 048
     Dates: start: 20100611
  2. CLOZARIL [Suspect]
     Route: 048
     Dates: start: 20080611, end: 19000101

REACTIONS (4)
  - DIFFERENTIAL WHITE BLOOD CELL COUNT ABNORMAL [None]
  - NEUTROPHIL COUNT INCREASED [None]
  - VIRAL INFECTION [None]
  - WHITE BLOOD CELL COUNT INCREASED [None]
